FAERS Safety Report 26130700 (Version 1)
Quarter: 2025Q4

REPORT INFORMATION
  Report Type: Spontaneous
  Country: US (occurrence: US)
  Receive Date: 20251208
  Receipt Date: 20251208
  Transmission Date: 20260118
  Serious: Yes (Hospitalization, Other)
  Sender: CHATTEM
  Company Number: US-OPELLA-2025OHG033904

PATIENT
  Age: 60 Year
  Sex: Female

DRUGS (3)
  1. SALICYLIC ACID [Suspect]
     Active Substance: SALICYLIC ACID
     Indication: Sebaceous gland disorder
     Route: 061
  2. SALICYLIC ACID [Suspect]
     Active Substance: SALICYLIC ACID
     Indication: Rhinophyma
  3. SALICYLIC ACID [Suspect]
     Active Substance: SALICYLIC ACID
     Indication: Skin bacterial infection

REACTIONS (4)
  - Head injury [Unknown]
  - Intentional self-injury [Unknown]
  - Brain injury [Unknown]
  - Brain abscess [Unknown]
